FAERS Safety Report 10082123 (Version 1)
Quarter: 2014Q2

REPORT INFORMATION
  Report Type: Spontaneous
  Country: US (occurrence: US)
  Receive Date: 20140416
  Receipt Date: 20140416
  Transmission Date: 20141212
  Serious: No
  Sender: FDA-Public Use
  Company Number: US-TEVA-475373USA

PATIENT
  Age: 54 Year
  Sex: Female
  Weight: 75.82 kg

DRUGS (10)
  1. QNASL [Suspect]
     Indication: HYPERSENSITIVITY
  2. XYZAL [Concomitant]
     Indication: HYPERSENSITIVITY
  3. COZAAR [Concomitant]
     Indication: HYPERTENSION
  4. CHOLESTEROL [Concomitant]
     Indication: BLOOD CHOLESTEROL INCREASED
  5. MULTIVITAMIN [Concomitant]
  6. OCCUVITE [Concomitant]
     Indication: SUPPLEMENTATION THERAPY
  7. ALLERGY SHOTS [Concomitant]
     Indication: SEASONAL ALLERGY
  8. ALLERGY SHOTS [Concomitant]
     Indication: HYPERSENSITIVITY
  9. ALLERGY SHOTS [Concomitant]
     Indication: HOUSE DUST ALLERGY
  10. ALLERGY SHOTS [Concomitant]
     Indication: ALLERGY TO ANIMAL

REACTIONS (6)
  - Vulvovaginal swelling [Not Recovered/Not Resolved]
  - Vulvovaginal pain [Not Recovered/Not Resolved]
  - Vulvovaginal erythema [Not Recovered/Not Resolved]
  - Swelling [Not Recovered/Not Resolved]
  - Proctalgia [Not Recovered/Not Resolved]
  - Perianal erythema [Not Recovered/Not Resolved]
